FAERS Safety Report 11127216 (Version 1)
Quarter: 2015Q2

REPORT INFORMATION
  Report Type: Spontaneous
  Country: US (occurrence: US)
  Receive Date: 20150521
  Receipt Date: 20150521
  Transmission Date: 20150821
  Serious: No
  Sender: FDA-Public Use
  Company Number: US-009507513-1504USA020766

PATIENT
  Sex: Female

DRUGS (1)
  1. DULERA [Suspect]
     Active Substance: FORMOTEROL FUMARATE DIHYDRATE\MOMETASONE FUROATE
     Dosage: 4 SPRAYS PER DAY
     Route: 055

REACTIONS (4)
  - Eye operation [Unknown]
  - Visual impairment [Unknown]
  - Cataract [Unknown]
  - Adverse event [Unknown]
